FAERS Safety Report 7682911-7 (Version None)
Quarter: 2011Q3

REPORT INFORMATION
  Report Type: 
  Country: None (occurrence: None)
  Receive Date: 20110815
  Receipt Date: 20110811
  Transmission Date: 20111222
  Serious: No
  Sender: FDA-Public Use
  Company Number: US-TEVA-285008USA

PATIENT
  Sex: Female
  Weight: 108.96 kg

DRUGS (4)
  1. OMEPRAZOLE [Concomitant]
     Indication: GASTROOESOPHAGEAL REFLUX DISEASE
  2. PROAIR HFA [Suspect]
     Indication: COUGH
     Route: 055
     Dates: start: 20110523, end: 20110526
  3. INSULIN HUMAN [Concomitant]
     Indication: DIABETES MELLITUS INADEQUATE CONTROL
  4. LEVOTHYROXINE SODIUM [Concomitant]
     Indication: HYPOTHYROIDISM

REACTIONS (3)
  - ORAL FUNGAL INFECTION [None]
  - SALIVA ALTERED [None]
  - ODYNOPHAGIA [None]
